FAERS Safety Report 8593366-2 (Version None)
Quarter: 2012Q3

REPORT INFORMATION
  Report Type: 
  Country: None (occurrence: None)
  Receive Date: 20120814
  Receipt Date: 20120809
  Transmission Date: 20120928
  Serious: Yes (Other)
  Sender: FDA-Public Use
  Company Number: US-BAYER-2011-086292

PATIENT
  Age: 40 Year
  Sex: Female

DRUGS (1)
  1. MIRENA [Suspect]
     Indication: PRODUCT USED FOR UNKNOWN INDICATION
     Dosage: 20 MCG/24HR, CONT
     Dates: start: 20090521, end: 20120627

REACTIONS (10)
  - DEVICE BREAKAGE [None]
  - MICTURITION URGENCY [None]
  - DEVICE DIFFICULT TO USE [None]
  - PELVIC PAIN [None]
  - URINARY TRACT INFECTION [None]
  - PELVIC DISCOMFORT [None]
  - VAGINAL HAEMORRHAGE [None]
  - PAIN [None]
  - DEVICE DISLOCATION [None]
  - HYDROMETRA [None]
